FAERS Safety Report 13740450 (Version 1)
Quarter: 2017Q3

REPORT INFORMATION
  Report Type: Spontaneous
  Country: US (occurrence: US)
  Receive Date: 20170710
  Receipt Date: 20170710
  Transmission Date: 20171127
  Serious: Yes (Other)
  Sender: FDA-Public Use
  Company Number: None

PATIENT
  Age: 50 Year
  Sex: Female
  Weight: 65.25 kg

DRUGS (1)
  1. GAMUNEX-C [Suspect]
     Active Substance: HUMAN IMMUNOGLOBULIN G
     Indication: IMMUNODEFICIENCY
     Dosage: QUANTITY:4 GRAMS;OTHER FREQUENCY:4G 1X/WK,3G 1X/WK;?
     Route: 058
     Dates: start: 20161201

REACTIONS (1)
  - Hepatitis B virus test positive [None]

NARRATIVE: CASE EVENT DATE: 20170501
